FAERS Safety Report 7743488-0 (Version None)
Quarter: 2011Q3

REPORT INFORMATION
  Report Type: 
  Country: None (occurrence: None)
  Receive Date: 20110912
  Receipt Date: 20100909
  Transmission Date: 20111222
  Serious: No
  Sender: FDA-Public Use
  Company Number: US-ABBOTT-10P-163-0670826-00

PATIENT
  Sex: Male
  Weight: 69.916 kg

DRUGS (5)
  1. BENTYL [Concomitant]
     Indication: INCONTINENCE
  2. AMLODIPINE [Concomitant]
     Indication: PRODUCT USED FOR UNKNOWN INDICATION
  3. LISINOPRIL [Concomitant]
     Indication: BLOOD PRESSURE
  4. FLUOXETINE [Concomitant]
     Indication: PRODUCT USED FOR UNKNOWN INDICATION
  5. DEPAKOTE [Suspect]
     Indication: PETIT MAL EPILEPSY
     Dosage: 4 IN AM AND 4 AT NIGHT

REACTIONS (1)
  - ABNORMAL BEHAVIOUR [None]
